FAERS Safety Report 11540469 (Version 1)
Quarter: 2015Q3

REPORT INFORMATION
  Report Type: Spontaneous
  Country: US (occurrence: US)
  Receive Date: 20150923
  Receipt Date: 20150923
  Transmission Date: 20151125
  Serious: No
  Sender: FDA-Public Use
  Company Number: US-BEH-2014047237

PATIENT
  Sex: Female
  Weight: 42 kg

DRUGS (6)
  1. LMX [Concomitant]
     Active Substance: LIDOCAINE
  2. DIPHENHYDRAMINE. [Concomitant]
     Active Substance: DIPHENHYDRAMINE
  3. EPIPEN [Concomitant]
     Active Substance: EPINEPHRINE
  4. CETIRIZINE HCL [Concomitant]
     Active Substance: CETIRIZINE HYDROCHLORIDE
  5. PRIVIGEN [Suspect]
     Active Substance: HUMAN IMMUNOGLOBULIN G
     Indication: IMMUNODEFICIENCY COMMON VARIABLE
  6. FLUTICASONE PROP [Concomitant]
     Route: 055

REACTIONS (1)
  - Drug hypersensitivity [Unknown]
